FAERS Safety Report 9022099 (Version 2)
Quarter: 2013Q1

REPORT INFORMATION
  Report Type: Spontaneous
  Country: IT (occurrence: IT)
  Receive Date: 20130118
  Receipt Date: 20130123
  Transmission Date: 20140127
  Serious: Yes (Other)
  Sender: FDA-Public Use
  Company Number: IT-GLAXOSMITHKLINE-B0860533A

PATIENT
  Sex: Female
  Weight: 77 kg

DRUGS (2)
  1. ARIXTRA [Suspect]
     Indication: DEEP VEIN THROMBOSIS
     Route: 065
  2. COUMADIN [Concomitant]

REACTIONS (1)
  - Retroperitoneal haematoma [Recovered/Resolved]
